FAERS Safety Report 10748308 (Version 2)
Quarter: 2015Q2

REPORT INFORMATION
  Report Type: Spontaneous
  Country: US (occurrence: None)
  Receive Date: 20150120
  Receipt Date: 20150420
  Transmission Date: 20150821
  Serious: No
  Sender: FDA-Public Use
  Company Number: AEGR000852

PATIENT
  Age: 50 Year
  Sex: Female
  Weight: 107 kg

DRUGS (26)
  1. PROAIR HFA [Concomitant]
     Active Substance: ALBUTEROL SULFATE
  2. ASPIRIN (ACETYLSALICYLIC ACID) [Concomitant]
     Active Substance: ASPIRIN
  3. METOPROLOL [Concomitant]
     Active Substance: METOPROLOL
  4. NITROSTAT (GLYCERYL TRINITRATE) [Concomitant]
  5. SULFASALAZINE. [Concomitant]
     Active Substance: SULFASALAZINE
  6. TRICOR [Concomitant]
     Active Substance: FENOFIBRATE
  7. HYDRALAZINE [Concomitant]
     Active Substance: HYDRALAZINE HYDROCHLORIDE
  8. KLOR-CON (POTASSIUM CHLORIDE) [Concomitant]
  9. LIDEX (FLUOCINONIDE) [Concomitant]
  10. TRAMADOL [Concomitant]
     Active Substance: TRAMADOL
  11. ZETIA [Concomitant]
     Active Substance: EZETIMIBE
  12. METFORMIN [Concomitant]
     Active Substance: METFORMIN HYDROCHLORIDE
  13. OMEGA (FISH OIL) [Concomitant]
  14. PSORCON [Suspect]
     Active Substance: DIFLORASONE DIACETATE
  15. RECLAST [Concomitant]
     Active Substance: ZOLEDRONIC ACID
  16. CRESTOR [Concomitant]
     Active Substance: ROSUVASTATIN CALCIUM
  17. JUXTAPID [Suspect]
     Active Substance: LOMITAPIDE MESYLATE
     Indication: TYPE IIA HYPERLIPIDAEMIA
     Route: 048
     Dates: start: 20141018
  18. PRILOSEC (OMEPRAZOLE) [Concomitant]
     Active Substance: OMEPRAZOLE MAGNESIUM
  19. VITAMIN E (VITAMIN E) [Concomitant]
  20. SPIRONOLACTONE. [Concomitant]
     Active Substance: SPIRONOLACTONE
  21. ADVAIR DISKUS [Concomitant]
     Active Substance: FLUTICASONE PROPIONATE\SALMETEROL XINAFOATE
  22. CALCIUM WITH VITAMIN D (CALCIUM CARBONATE, ERGOCALCIFEROL) [Concomitant]
  23. HYDROCORTISONE. [Concomitant]
     Active Substance: HYDROCORTISONE
  24. LEVOTHYROXINE [Concomitant]
     Active Substance: LEVOTHYROXINE
  25. MINOXIDIL. [Concomitant]
     Active Substance: MINOXIDIL
  26. TORSEMIDE. [Concomitant]
     Active Substance: TORSEMIDE

REACTIONS (5)
  - Abdominal distension [None]
  - Nausea [None]
  - Gastrooesophageal reflux disease [None]
  - Flatulence [None]
  - Headache [None]

NARRATIVE: CASE EVENT DATE: 20141018
